FAERS Safety Report 7738361-8 (Version None)
Quarter: 2011Q3

REPORT INFORMATION
  Report Type: 
  Country: None (occurrence: None)
  Receive Date: 20110908
  Receipt Date: 20110905
  Transmission Date: 20111222
  Serious: Yes (Life-Threatening, Disabling, Other)
  Sender: FDA-Public Use
  Company Number: AU-PFIZER INC-HQ1163504MAR2002

PATIENT
  Age: 57 Year
  Sex: Female
  Weight: 58 kg

DRUGS (2)
  1. EFFEXOR XR [Suspect]
     Indication: DEPRESSION
     Dosage: 150 MG, 1X/DAY
     Route: 048
     Dates: start: 19990501
  2. MERSYNDOL [Concomitant]
     Dosage: UNK
     Route: 048

REACTIONS (2)
  - EJECTION FRACTION ABNORMAL [None]
  - CARDIOMYOPATHY [None]
